FAERS Safety Report 23552395 (Version 1)
Quarter: 2024Q1

REPORT INFORMATION
  Report Type: Spontaneous
  Country: US (occurrence: US)
  Receive Date: 20240222
  Receipt Date: 20240222
  Transmission Date: 20240410
  Serious: No
  Sender: FDA-Public Use
  Company Number: US-TAKEDA-2024TUS016563

PATIENT
  Sex: Male
  Weight: 73 kg

DRUGS (1)
  1. VYVANSE [Suspect]
     Active Substance: LISDEXAMFETAMINE DIMESYLATE
     Indication: Craniocerebral injury
     Dosage: 70 MILLIGRAM, QD
     Route: 065
     Dates: start: 2022

REACTIONS (4)
  - Inability to afford medication [Unknown]
  - Insurance issue [Unknown]
  - Product availability issue [Unknown]
  - Product use issue [Unknown]
